FAERS Safety Report 14234370 (Version 1)
Quarter: 2017Q4

REPORT INFORMATION
  Report Type: Spontaneous
  Country: US (occurrence: US)
  Receive Date: 20171129
  Receipt Date: 20171129
  Transmission Date: 20180321
  Serious: Yes (Other)
  Sender: FDA-Public Use
  Company Number: US-CELGENEUS-USA-20171106892

PATIENT
  Sex: Female

DRUGS (1)
  1. REVLIMID [Suspect]
     Active Substance: LENALIDOMIDE
     Indication: PLASMA CELL MYELOMA
     Dosage: 25 MILLIGRAM
     Route: 048
     Dates: start: 201710

REACTIONS (5)
  - Muscle tightness [Unknown]
  - Oedema peripheral [Unknown]
  - Chest discomfort [Unknown]
  - Rash generalised [Unknown]
  - Neck pain [Unknown]

NARRATIVE: CASE EVENT DATE: 2017
